FAERS Safety Report 10606644 (Version 5)
Quarter: 2015Q2

REPORT INFORMATION
  Report Type: Spontaneous
  Country: GB (occurrence: GB)
  Receive Date: 20141125
  Receipt Date: 20150529
  Transmission Date: 20150821
  Serious: Yes (Hospitalization, Other)
  Sender: FDA-Public Use
  Company Number: GB-AMGEN-GBRSP2014058035

PATIENT
  Age: 30 Year
  Sex: Female
  Weight: 57 kg

DRUGS (12)
  1. ASPIRIN                            /00002701/ [Concomitant]
     Active Substance: ASPIRIN
     Dosage: 75 MG, QD
     Route: 048
     Dates: start: 20140531
  2. ARANESP [Suspect]
     Active Substance: DARBEPOETIN ALFA
     Indication: ANAEMIA
     Dosage: 40 MCG, QWK
     Route: 042
     Dates: start: 20140202, end: 20150224
  3. LABETALOL [Concomitant]
     Active Substance: LABETALOL\LABETALOL HYDROCHLORIDE
     Indication: HYPERTENSION
     Dosage: 200 MG, BID
     Route: 048
  4. METHYLDOPA. [Concomitant]
     Active Substance: METHYLDOPA
     Dosage: 1 G, TID
     Route: 048
     Dates: start: 20140731
  5. AZATHIOPRINE. [Concomitant]
     Active Substance: AZATHIOPRINE
     Indication: IMMUNOSUPPRESSION
     Dosage: 100 MG, QD
     Route: 048
     Dates: start: 20140620
  6. NIFEDIPINE. [Concomitant]
     Active Substance: NIFEDIPINE
     Indication: HYPERTENSION
     Dosage: 40 MG, BID
     Route: 048
     Dates: start: 20141204
  7. FOLIC ACID. [Concomitant]
     Active Substance: FOLIC ACID
     Dosage: 5 MG, QD
     Route: 048
     Dates: start: 20140804
  8. IRON [Concomitant]
     Active Substance: IRON
     Indication: ANAEMIA
  9. TACROLIMUS. [Concomitant]
     Active Substance: TACROLIMUS
     Indication: IMMUNOSUPPRESSION
     Dosage: 5.5 MG, BID
     Route: 048
     Dates: start: 20140717
  10. SODIUM BICARBONATE. [Concomitant]
     Active Substance: SODIUM BICARBONATE
     Indication: ANTACID THERAPY
     Dosage: 500 MG, BID
     Route: 048
     Dates: start: 20140814
  11. CORACTEN [Concomitant]
     Dosage: 40 UNK, BID
     Route: 048
     Dates: start: 20141117
  12. ABIDEC                             /00266401/ [Concomitant]

REACTIONS (6)
  - Premature separation of placenta [Recovered/Resolved]
  - Premature delivery [Recovered/Resolved]
  - Carpal tunnel syndrome [Unknown]
  - Caesarean section [Recovered/Resolved]
  - Alopecia [Unknown]
  - Anaemia [Unknown]

NARRATIVE: CASE EVENT DATE: 20141016
